FAERS Safety Report 7416136-7 (Version None)
Quarter: 2011Q2

REPORT INFORMATION
  Report Type: 
  Country: None (occurrence: None)
  Receive Date: 20110406
  Receipt Date: 20110322
  Transmission Date: 20111010
  Serious: Yes (Hospitalization)
  Sender: FDA-Public Use
  Company Number: 2011MA002756

PATIENT
  Age: 39 Year
  Sex: Male

DRUGS (1)
  1. TRAMADOL HCL [Suspect]
     Indication: PELVIC PAIN
     Dosage: 600 MG;
     Dates: start: 20050101, end: 20070101

REACTIONS (10)
  - DRUG DEPENDENCE [None]
  - MUSCLE SPASMS [None]
  - RESTLESSNESS [None]
  - DRUG WITHDRAWAL SYNDROME [None]
  - IMPAIRED WORK ABILITY [None]
  - FEELING GUILTY [None]
  - DYSPHORIA [None]
  - FAMILY STRESS [None]
  - ANXIETY [None]
  - FORMICATION [None]
